FAERS Safety Report 8031937-2 (Version None)
Quarter: 2012Q1

REPORT INFORMATION
  Report Type: 
  Country: None (occurrence: None)
  Receive Date: 20120109
  Receipt Date: 20111014
  Transmission Date: 20120608
  Serious: No
  Sender: FDA-Public Use
  Company Number: US-ABBOTT-11P-163-0864797-00

PATIENT
  Age: 61 Year
  Sex: Female

DRUGS (2)
  1. VICODIN [Suspect]
     Indication: FIBROMYALGIA
  2. VICODIN [Suspect]
     Indication: PAIN

REACTIONS (1)
  - DRUG RESISTANCE [None]
